FAERS Safety Report 15672682 (Version 1)
Quarter: 2018Q4

REPORT INFORMATION
  Report Type: Spontaneous
  Country: ES (occurrence: ES)
  Receive Date: 20181129
  Receipt Date: 20181129
  Transmission Date: 20190205
  Serious: Yes (Hospitalization)
  Sender: FDA-Public Use
  Company Number: ES-PFIZER INC-2018493144

PATIENT
  Age: 68 Year
  Sex: Female

DRUGS (1)
  1. METHOTREXATE SODIUM. [Suspect]
     Active Substance: METHOTREXATE SODIUM
     Indication: RHEUMATOID ARTHRITIS
     Dosage: 12.5 MG, WEEKLY

REACTIONS (6)
  - Nervous system disorder [Unknown]
  - Wound haemorrhage [Unknown]
  - C-reactive protein increased [Unknown]
  - Leukocytosis [Unknown]
  - Wound dehiscence [Unknown]
  - Postoperative wound infection [Unknown]
